FAERS Safety Report 4718417-4 (Version None)
Quarter: 2005Q3

REPORT INFORMATION
  Report Type: 
  Country: None (occurrence: None)
  Receive Date: 20050720
  Receipt Date: 20050524
  Transmission Date: 20060218
  Serious: Yes (Life-Threatening, Hospitalization, Disabling)
  Sender: FDA-Public Use
  Company Number: US-MERCK-0505USA02828

PATIENT
  Age: 66 Year
  Sex: Female

DRUGS (6)
  1. ZETIA [Suspect]
     Indication: BLOOD TRIGLYCERIDES INCREASED
     Route: 048
     Dates: start: 20041001, end: 20050523
  2. LIPITOR [Concomitant]
     Route: 065
  3. CARTIA XT [Concomitant]
     Route: 065
  4. HYDROCHLOROTHIAZIDE [Concomitant]
     Route: 065
  5. PREVACID [Concomitant]
     Route: 065
  6. PREMARIN [Concomitant]
     Route: 065

REACTIONS (2)
  - BILE DUCT OBSTRUCTION [None]
  - CHOLELITHIASIS [None]
